FAERS Safety Report 5672162-X (Version None)
Quarter: 2008Q1

REPORT INFORMATION
  Report Type: 
  Country: None (occurrence: None)
  Receive Date: 20080319
  Receipt Date: 20080311
  Transmission Date: 20080703
  Serious: Yes (Other)
  Sender: FDA-Public Use
  Company Number: GB-BAYER-200810640BNE

PATIENT
  Age: 79 Year
  Sex: Male

DRUGS (1)
  1. MABCAMPATH [Suspect]

REACTIONS (1)
  - PRURITUS [None]
